FAERS Safety Report 7627925-8 (Version None)
Quarter: 2011Q3

REPORT INFORMATION
  Report Type: 
  Country: None (occurrence: None)
  Receive Date: 20110722
  Receipt Date: 20110708
  Transmission Date: 20111222
  Serious: Yes (Hospitalization)
  Sender: FDA-Public Use
  Company Number: GB-MYLANLABS-2011S1014353

PATIENT
  Age: 62 Year
  Sex: Male
  Weight: 72.5 kg

DRUGS (8)
  1. FERROUS SULFATE TAB [Concomitant]
     Indication: BLOOD IRON DECREASED
     Route: 048
  2. LISINOPRIL [Concomitant]
     Indication: HYPERTENSION
     Route: 048
  3. SIMVASTATIN [Concomitant]
     Indication: HYPERCHOLESTEROLAEMIA
     Route: 048
  4. IRINOTECAN HCL [Suspect]
     Indication: COLORECTAL CANCER METASTATIC
     Route: 042
     Dates: start: 20110426, end: 20110426
  5. LANSOPRAZOLE [Concomitant]
     Indication: PRODUCT USED FOR UNKNOWN INDICATION
     Route: 048
  6. FLUOROURACIL [Suspect]
     Indication: COLORECTAL CANCER METASTATIC
     Route: 042
     Dates: start: 20110426, end: 20110428
  7. HUMALOG [Concomitant]
     Indication: DIABETES MELLITUS
  8. MIXTARD HUMAN 70/30 [Concomitant]
     Indication: DIABETES MELLITUS

REACTIONS (1)
  - URINARY RETENTION [None]
